FAERS Safety Report 7323221-7 (Version None)
Quarter: 2011Q1

REPORT INFORMATION
  Report Type: 
  Country: None (occurrence: None)
  Receive Date: 20110217
  Receipt Date: 20110202
  Transmission Date: 20110831
  Serious: Yes (Hospitalization)
  Sender: FDA-Public Use
  Company Number: AUR-APL-2011-00436

PATIENT
  Age: 39 Year
  Sex: Male
  Weight: 79 kg

DRUGS (6)
  1. PANTOPRAZOL [Concomitant]
  2. CEFUROXIME [Suspect]
     Dosage: ORAL
     Route: 048
     Dates: start: 20090818, end: 20090916
  3. LEVETIRACETAM [Concomitant]
  4. TINZAPARIN SODIUM [Concomitant]
  5. METAMIZOL NATRIUM [Concomitant]
  6. SORAFENIB [Suspect]
     Indication: HEPATIC NEOPLASM MALIGNANT
     Dosage: 400MG-BID-ORAL
     Route: 048
     Dates: start: 20090804

REACTIONS (1)
  - GASTROENTERITIS CLOSTRIDIAL [None]
